FAERS Safety Report 15114702 (Version 1)
Quarter: 2018Q2

REPORT INFORMATION
  Report Type: Spontaneous
  Country: US (occurrence: US)
  Receive Date: 20180612
  Receipt Date: 20180612
  Transmission Date: 20180711
  Serious: Yes (Other)
  Sender: FDA-Public Use
  Company Number: None

PATIENT
  Age: 57 Year
  Sex: Female
  Weight: 58.5 kg

DRUGS (1)
  1. BOTOX [Suspect]
     Active Substance: ONABOTULINUMTOXINA
     Indication: MIGRAINE PROPHYLAXIS
     Dates: start: 20180605

REACTIONS (15)
  - Jaw disorder [None]
  - Swollen tongue [None]
  - Mastication disorder [None]
  - Musculoskeletal pain [None]
  - Tinnitus [None]
  - Headache [None]
  - Vision blurred [None]
  - Pain in jaw [None]
  - Hypoaesthesia [None]
  - Hypoaesthesia eye [None]
  - Pharyngeal oedema [None]
  - Eye pain [None]
  - Paralysis [None]
  - Oral pain [None]
  - Frustration tolerance decreased [None]

NARRATIVE: CASE EVENT DATE: 20180607
